FAERS Safety Report 7494107-2 (Version None)
Quarter: 2011Q2

REPORT INFORMATION
  Report Type: 
  Country: None (occurrence: None)
  Receive Date: 20110520
  Receipt Date: 20110506
  Transmission Date: 20111010
  Serious: Yes (Hospitalization)
  Sender: FDA-Public Use
  Company Number: CA-JNJFOC-20110504451

PATIENT
  Sex: Female
  Weight: 70.7 kg

DRUGS (2)
  1. REMICADE [Suspect]
     Indication: RHEUMATOID ARTHRITIS
     Route: 042
     Dates: start: 20081201
  2. REMICADE [Suspect]
     Route: 042
     Dates: start: 20110317

REACTIONS (3)
  - MEDICAL DEVICE REMOVAL [None]
  - RHEUMATOID ARTHRITIS [None]
  - INFECTION [None]
